FAERS Safety Report 20548615 (Version 2)
Quarter: 2022Q1

REPORT INFORMATION
  Report Type: Spontaneous
  Country: JP (occurrence: JP)
  Receive Date: 20220303
  Receipt Date: 20220317
  Transmission Date: 20220423
  Serious: Yes (Other)
  Sender: FDA-Public Use
  Company Number: JP-TEVA-2022-JP-2011601

PATIENT
  Age: 82 Year
  Sex: Female

DRUGS (4)
  1. PREDNISOLONE [Suspect]
     Active Substance: PREDNISOLONE
     Indication: SJS-TEN overlap
     Dosage: 20 MG, 0.5 MG/KG
     Route: 048
  2. PREDNISOLONE [Suspect]
     Active Substance: PREDNISOLONE
     Dosage: 10 MG, 0.25 MG/KG
     Route: 048
  3. PREDNISOLONE [Suspect]
     Active Substance: PREDNISOLONE
     Dosage: 30 MG, 0.8 MG/KG
     Route: 048
  4. TIRABRUTINIB [Suspect]
     Active Substance: TIRABRUTINIB
     Indication: Central nervous system lymphoma
     Dosage: 480 MILLIGRAM DAILY;
     Route: 048

REACTIONS (2)
  - SJS-TEN overlap [Recovering/Resolving]
  - Hyperglycaemia [Unknown]
